FAERS Safety Report 9241713 (Version 1)
Quarter: 2013Q2

REPORT INFORMATION
  Report Type: Spontaneous
  Country: FR (occurrence: FR)
  Receive Date: 20130419
  Receipt Date: 20130419
  Transmission Date: 20140414
  Serious: Yes (Hospitalization)
  Sender: FDA-Public Use
  Company Number: FR-ELI_LILLY_AND_COMPANY-FR201304002610

PATIENT
  Age: 74 Year
  Sex: Male

DRUGS (5)
  1. FORSTEO [Suspect]
     Indication: OSTEOPOROSIS
     Dosage: 20 UG, QD
     Route: 058
     Dates: start: 20121104
  2. COAPROVEL [Concomitant]
  3. AMIODARONE [Concomitant]
  4. PREVISCAN [Concomitant]
  5. SERTRALINE [Concomitant]

REACTIONS (2)
  - Inguinal hernia [Recovered/Resolved]
  - Neoplasm malignant [Recovered/Resolved]
